FAERS Safety Report 7681254-5 (Version None)
Quarter: 2011Q3

REPORT INFORMATION
  Report Type: 
  Country: None (occurrence: None)
  Receive Date: 20110812
  Receipt Date: 20110721
  Transmission Date: 20111222
  Serious: Yes (Hospitalization)
  Sender: FDA-Public Use
  Company Number: PHHO2011NZ12512

PATIENT
  Sex: Female
  Weight: 58.1 kg

DRUGS (4)
  1. MORPHINE SULFATE [Concomitant]
     Indication: PAIN
     Dosage: 10 MG, UNK
     Route: 048
     Dates: end: 20110720
  2. GABAPENTIN [Concomitant]
     Indication: PAIN
     Dosage: 300 MG, UNK
     Route: 048
     Dates: end: 20110720
  3. RAD 666 / RAD 001A [Suspect]
     Indication: METASTATIC RENAL CELL CARCINOMA
     Dosage: 10 MG, UNK
     Route: 048
     Dates: start: 20110610, end: 20110720
  4. ZOLEDRONIC [Suspect]
     Indication: METASTATIC RENAL CELL CARCINOMA
     Dosage: 4 MG, UNK
     Route: 042
     Dates: start: 20110610, end: 20110720

REACTIONS (3)
  - CYSTITIS [None]
  - RENAL FAILURE ACUTE [None]
  - CHOLECYSTITIS INFECTIVE [None]
